FAERS Safety Report 8077137-1 (Version None)
Quarter: 2012Q1

REPORT INFORMATION
  Report Type: 
  Country: None (occurrence: None)
  Receive Date: 20120126
  Receipt Date: 20120126
  Transmission Date: 20120608
  Serious: Yes (Disabling)
  Sender: FDA-Public Use
  Company Number: None

PATIENT
  Sex: Male
  Weight: 101.8 kg

DRUGS (2)
  1. XELODA [Suspect]
     Indication: NEOPLASM MALIGNANT
     Dosage: XELODA 2500 MG DAILY ORAL
     Route: 048
     Dates: start: 20020207, end: 20020212
  2. FLUOROURACIL [Suspect]
     Indication: NEOPLASM MALIGNANT
     Dosage: 1520 MG/DAY DAILY INTRAVENOUS
     Route: 042
     Dates: start: 20020107, end: 20020206

REACTIONS (1)
  - ADVERSE DRUG REACTION [None]
